FAERS Safety Report 9553668 (Version 3)
Quarter: 2013Q4

REPORT INFORMATION
  Report Type: Report from Study
  Country: US (occurrence: US)
  Receive Date: 20130925
  Receipt Date: 20131011
  Transmission Date: 20140711
  Serious: Yes (Death)
  Sender: FDA-Public Use
  Company Number: US-ACTELION-A-US2013-81735

PATIENT
  Age: 66 Year
  Sex: Female

DRUGS (4)
  1. TRACLEER [Suspect]
     Indication: PULMONARY ARTERIAL HYPERTENSION
     Dosage: UNK
     Route: 048
     Dates: end: 20130912
  2. ADCIRCA [Concomitant]
  3. TYVASO [Concomitant]
  4. OXYGEN [Concomitant]

REACTIONS (6)
  - Death [Fatal]
  - Fall [Unknown]
  - Syncope [Unknown]
  - Loss of consciousness [Unknown]
  - Aura [Unknown]
  - Dyspnoea [Unknown]
